FAERS Safety Report 9957188 (Version 1)
Quarter: 2014Q1

REPORT INFORMATION
  Report Type: Report from Study
  Country: US (occurrence: US)
  Receive Date: 20140304
  Receipt Date: 20140304
  Transmission Date: 20141002
  Serious: No
  Sender: FDA-Public Use
  Company Number: US-ABBVIE-13P-163-1096704-00

PATIENT
  Age: 46 Year
  Sex: Female

DRUGS (13)
  1. HUMIRA [Suspect]
     Indication: CROHN^S DISEASE
     Dates: start: 20130520, end: 20130520
  2. HUMIRA [Suspect]
  3. TOPIRIMATE [Concomitant]
     Indication: MIGRAINE
  4. DEXILANT ER [Concomitant]
     Indication: GASTROOESOPHAGEAL REFLUX DISEASE
     Dosage: 60 MG DAILY
  5. COVIRAX [Concomitant]
     Indication: HORMONE REPLACEMENT THERAPY
     Dosage: 0.651 TAB DAILY
  6. ELMIRONE [Concomitant]
     Indication: CYSTITIS
  7. FLUOXETINE [Concomitant]
     Indication: DEPRESSION
     Dosage: 20 MG DAILY
  8. FLUOXETINE [Concomitant]
     Indication: ANXIETY
  9. ALPRAZALAM [Concomitant]
     Indication: PRODUCT USED FOR UNKNOWN INDICATION
  10. OSCIMIN [Concomitant]
     Indication: DYSPEPSIA
     Dosage: 0.375
  11. COLON HEALTH PROBIOTIC [Concomitant]
     Indication: PRODUCT USED FOR UNKNOWN INDICATION
     Dosage: DAILY
  12. ZYRTEC [Concomitant]
     Indication: SEASONAL ALLERGY
     Dosage: 10 MG DAILY
  13. PREDNISONE [Concomitant]
     Indication: PRODUCT USED FOR UNKNOWN INDICATION

REACTIONS (9)
  - Fatigue [Not Recovered/Not Resolved]
  - Injection site pain [Recovered/Resolved]
  - Diarrhoea [Not Recovered/Not Resolved]
  - Abdominal pain [Not Recovered/Not Resolved]
  - Nausea [Not Recovered/Not Resolved]
  - Vomiting [Not Recovered/Not Resolved]
  - Paraesthesia [Not Recovered/Not Resolved]
  - Visual impairment [Not Recovered/Not Resolved]
  - Gastrooesophageal reflux disease [Not Recovered/Not Resolved]
